FAERS Safety Report 22239153 (Version 2)
Quarter: 2023Q2

REPORT INFORMATION
  Report Type: Spontaneous
  Country: CA (occurrence: None)
  Receive Date: 20230421
  Receipt Date: 20230606
  Transmission Date: 20230721
  Serious: Yes (Other)
  Sender: FDA-Public Use
  Company Number: CA-PFIZER INC-202300159892

PATIENT
  Age: 36 Year
  Sex: Female
  Weight: 118 kg

DRUGS (8)
  1. METHOTREXATE [Suspect]
     Active Substance: METHOTREXATE
     Indication: Crohn^s disease
  2. APIXABAN [Concomitant]
     Active Substance: APIXABAN
  3. CITALOPRAM [Concomitant]
     Active Substance: CITALOPRAM HYDROBROMIDE
  4. FOLIC ACID [Concomitant]
     Active Substance: FOLIC ACID
  5. GRAVOL [Concomitant]
     Active Substance: DIMENHYDRINATE
     Dosage: 1 DF (DUE TO MTX)
  6. PANTOPRAZOLE [Concomitant]
     Active Substance: PANTOPRAZOLE
     Dosage: (DIE)
  7. QUETIAPINE [Concomitant]
     Active Substance: QUETIAPINE
  8. ABRILADA [Concomitant]
     Active Substance: ADALIMUMAB-AFZB
     Indication: Crohn^s disease
     Dosage: 1 DF,PREFILLED PEN - WEEK 0 - 160 MG, WEEK 2 - 80 MG, THEN 40 MG EVERY OTHER WEEK STARTING WEEK 4
     Dates: start: 20230501

REACTIONS (10)
  - Seizure [Unknown]
  - Product use in unapproved indication [Unknown]
  - Vomiting [Unknown]
  - Abdominal distension [Not Recovered/Not Resolved]
  - Abdominal pain [Recovered/Resolved]
  - Diarrhoea [Recovered/Resolved]
  - Frequent bowel movements [Not Recovered/Not Resolved]
  - Dysuria [Not Recovered/Not Resolved]
  - Chromaturia [Unknown]
  - Urine odour abnormal [Unknown]

NARRATIVE: CASE EVENT DATE: 20230529
